FAERS Safety Report 11739132 (Version 2)
Quarter: 2016Q1

REPORT INFORMATION
  Report Type: Spontaneous
  Country: US (occurrence: US)
  Receive Date: 20151113
  Receipt Date: 20160121
  Transmission Date: 20160525
  Serious: Yes (Life-Threatening, Hospitalization, Other)
  Sender: FDA-Public Use
  Company Number: US-EMD SERONO-231433K09USA

PATIENT
  Age: 39 Year
  Sex: Male
  Weight: 88 kg

DRUGS (7)
  1. NEURONTIN [Concomitant]
     Active Substance: GABAPENTIN
     Indication: MUSCLE SPASMS
     Dates: start: 200707
  2. REBIF [Suspect]
     Active Substance: INTERFERON BETA-1A
     Indication: MULTIPLE SCLEROSIS
     Route: 058
     Dates: start: 20070629
  3. REBIF [Suspect]
     Active Substance: INTERFERON BETA-1A
     Route: 058
  4. REBIF [Suspect]
     Active Substance: INTERFERON BETA-1A
     Route: 058
  5. REBIF [Suspect]
     Active Substance: INTERFERON BETA-1A
     Route: 058
  6. REBIF [Suspect]
     Active Substance: INTERFERON BETA-1A
     Route: 058
     Dates: start: 20100420
  7. LIPITOR [Concomitant]
     Active Substance: ATORVASTATIN CALCIUM
     Indication: BLOOD CHOLESTEROL INCREASED

REACTIONS (20)
  - Testicular haemorrhage [Unknown]
  - Heart rate irregular [Not Recovered/Not Resolved]
  - Inguinal mass [Recovered/Resolved]
  - Prostate infection [Unknown]
  - Sepsis [Recovered/Resolved]
  - Orchitis [Recovered/Resolved]
  - Cystitis [Unknown]
  - Ventricular extrasystoles [Not Recovered/Not Resolved]
  - Vascular pseudoaneurysm ruptured [Recovered/Resolved]
  - Anaphylactic reaction [Unknown]
  - Deep vein thrombosis [Recovered/Resolved]
  - Coronary artery stenosis [Recovered/Resolved]
  - Atrial fibrillation [Recovered/Resolved]
  - Intestinal haematoma [Recovered/Resolved]
  - Bundle branch block right [Recovered/Resolved]
  - Post procedural haemorrhage [Unknown]
  - Infection [Unknown]
  - Loss of consciousness [Recovered/Resolved]
  - Headache [Recovered/Resolved]
  - Vascular pseudoaneurysm [Recovered/Resolved]

NARRATIVE: CASE EVENT DATE: 200812
